FAERS Safety Report 20779287 (Version 1)
Quarter: 2022Q2

REPORT INFORMATION
  Report Type: Spontaneous
  Country: CA (occurrence: CA)
  Receive Date: 20220503
  Receipt Date: 20220503
  Transmission Date: 20220721
  Serious: Yes (Death, Other)
  Sender: FDA-Public Use
  Company Number: CA-OTSUKA-2022_025605

PATIENT
  Age: 8 Year

DRUGS (4)
  1. BUSULFAN [Suspect]
     Active Substance: BUSULFAN
     Indication: Bone marrow conditioning regimen
     Dosage: UNK
     Route: 065
  2. CYCLOPHOSPHAMIDE [Suspect]
     Active Substance: CYCLOPHOSPHAMIDE
     Indication: Bone marrow conditioning regimen
     Dosage: UNK
     Route: 065
  3. METHYLPREDNISOLONE [Concomitant]
     Active Substance: METHYLPREDNISOLONE
     Indication: Graft versus host disease
     Dosage: UNK
     Route: 065
  4. CYCLOSPORINE [Concomitant]
     Active Substance: CYCLOSPORINE
     Indication: Graft versus host disease
     Dosage: UNK
     Route: 065

REACTIONS (14)
  - Death [Fatal]
  - Respiratory tract ulceration [Unknown]
  - Coagulopathy [Unknown]
  - Gastrointestinal haemorrhage [Unknown]
  - Respiratory distress [Unknown]
  - Cytomegalovirus urinary tract infection [Unknown]
  - Pneumonia fungal [Unknown]
  - Aspergillus infection [Unknown]
  - Bacteraemia [Unknown]
  - Staphylococcal infection [Unknown]
  - Pancytopenia [Unknown]
  - Pleural effusion [Unknown]
  - Pyrexia [Unknown]
  - Product use in unapproved indication [Unknown]
